FAERS Safety Report 25750817 (Version 1)
Quarter: 2025Q3

REPORT INFORMATION
  Report Type: Spontaneous
  Country: US (occurrence: US)
  Receive Date: 20250902
  Receipt Date: 20250902
  Transmission Date: 20251021
  Serious: No
  Sender: MYLAN
  Company Number: US-MYLANLABS-2025M1071788

PATIENT
  Age: 7 Year
  Sex: Male

DRUGS (3)
  1. PREDNISONE [Suspect]
     Active Substance: PREDNISONE
     Indication: Duchenne muscular dystrophy
  2. ELEVIDYS [Suspect]
     Active Substance: DELANDISTROGENE MOXEPARVOVEC-ROKL
     Indication: Duchenne muscular dystrophy
     Dates: start: 20241205, end: 20241205
  3. AGAMREE [Concomitant]
     Active Substance: VAMOROLONE
     Indication: Duchenne muscular dystrophy

REACTIONS (6)
  - Hyperphagia [Recovered/Resolved]
  - Aggression [Recovered/Resolved]
  - Swelling face [Recovered/Resolved]
  - Weight increased [Recovering/Resolving]
  - Behaviour disorder [Recovered/Resolved]
  - Off label use [Unknown]

NARRATIVE: CASE EVENT DATE: 20241201
